FAERS Safety Report 21147917 (Version 1)
Quarter: 2022Q3

REPORT INFORMATION
  Report Type: Spontaneous
  Country: DE (occurrence: DE)
  Receive Date: 20220729
  Receipt Date: 20220729
  Transmission Date: 20221026
  Serious: No
  Sender: FDA-Public Use
  Company Number: None

PATIENT
  Age: 37 Year
  Sex: Female
  Weight: 60 kg

DRUGS (1)
  1. CEFUROXIME AXETIL [Suspect]
     Active Substance: CEFUROXIME AXETIL
     Indication: Tonsillitis
     Dosage: 2 DOSAGE FORM, EVERY ONE DAY
     Route: 048
     Dates: start: 20220503, end: 20220505

REACTIONS (4)
  - Headache [Not Recovered/Not Resolved]
  - Dizziness [Recovering/Resolving]
  - Dysgeusia [Not Recovered/Not Resolved]
  - Hypogeusia [Not Recovered/Not Resolved]

NARRATIVE: CASE EVENT DATE: 20220503
